FAERS Safety Report 6585834-X (Version None)
Quarter: 2010Q1

REPORT INFORMATION
  Report Type: 
  Country: None (occurrence: None)
  Receive Date: 20100217
  Receipt Date: 20100203
  Transmission Date: 20100710
  Serious: No
  Sender: FDA-Public Use
  Company Number: US-B.I. PHARMACEUTICALS,INC./RIDGEFIELD-2010-BP-01322BP

PATIENT
  Sex: Female

DRUGS (7)
  1. MIRAPEX [Suspect]
     Indication: PARKINSON'S DISEASE
     Dosage: 0.375 MG
     Route: 048
     Dates: start: 20091001
  2. ARICEPT [Suspect]
     Indication: PARKINSON'S DISEASE
  3. ZOCOR [Concomitant]
     Indication: BLOOD CHOLESTEROL INCREASED
  4. CYMBALTA [Concomitant]
     Indication: DEPRESSION
  5. TRAZODONE HCL [Concomitant]
     Indication: INSOMNIA
  6. PERCOCET [Concomitant]
     Indication: BACK PAIN
  7. ESTRACE [Concomitant]
     Indication: MENOPAUSE

REACTIONS (4)
  - FEELING COLD [None]
  - FLATULENCE [None]
  - MUSCLE SPASMS [None]
  - VISUAL IMPAIRMENT [None]
